FAERS Safety Report 4967548-2 (Version None)
Quarter: 2006Q2

REPORT INFORMATION
  Report Type: 
  Country: None (occurrence: None)
  Receive Date: 20060410
  Receipt Date: 20060327
  Transmission Date: 20061013
  Serious: Yes (Death, Other)
  Sender: FDA-Public Use
  Company Number: AU-GLAXOSMITHKLINE-B0418962A

PATIENT
  Sex: Female

DRUGS (2)
  1. MELPHALAN [Suspect]
     Indication: AMYLOIDOSIS
     Dosage: 200MGM2 SEE DOSAGE TEXT
  2. STEM CELL TRANSPLANT [Concomitant]
     Indication: AMYLOIDOSIS

REACTIONS (9)
  - DIARRHOEA [None]
  - FEBRILE NEUTROPENIA [None]
  - GASTROINTESTINAL HAEMORRHAGE [None]
  - HAEMODIALYSIS [None]
  - MUCOSAL INFLAMMATION [None]
  - NAUSEA [None]
  - NEPHROTIC SYNDROME [None]
  - RENAL FAILURE ACUTE [None]
  - VOMITING [None]
